FAERS Safety Report 5956585-7 (Version None)
Quarter: 2008Q4

REPORT INFORMATION
  Report Type: 
  Country: None (occurrence: None)
  Receive Date: 20081117
  Receipt Date: 20081117
  Transmission Date: 20090506
  Serious: Yes (Hospitalization)
  Sender: FDA-Public Use
  Company Number: None

PATIENT
  Age: 83 Year
  Sex: Male
  Weight: 98.4 kg

DRUGS (1)
  1. GLYBURIDE [Suspect]
     Indication: DIABETES MELLITUS
     Dosage: 7.5 MG EVERY DAY PO
     Route: 048
     Dates: start: 19970409

REACTIONS (4)
  - HYPOGLYCAEMIA [None]
  - HYPOPHAGIA [None]
  - SEPSIS [None]
  - TREATMENT NONCOMPLIANCE [None]
